FAERS Safety Report 24592230 (Version 1)
Quarter: 2024Q4

REPORT INFORMATION
  Report Type: Spontaneous
  Country: CN (occurrence: CN)
  Receive Date: 20241108
  Receipt Date: 20241108
  Transmission Date: 20250115
  Serious: Yes (Other)
  Sender: SANOFI AVENTIS
  Company Number: CN-SA-2024SA320250

PATIENT
  Age: 51 Year
  Sex: Male
  Weight: 55 kg

DRUGS (2)
  1. OXALIPLATIN [Suspect]
     Active Substance: OXALIPLATIN
     Indication: Rectal cancer
     Dosage: 110 MG, QD
     Route: 041
     Dates: start: 20241022, end: 20241022
  2. DEXTROSE [Concomitant]
     Active Substance: DEXTROSE MONOHYDRATE
     Indication: Vehicle solution use
     Dosage: 500ML QD
     Route: 041
     Dates: start: 20241022, end: 20241022

REACTIONS (2)
  - Discomfort [Recovering/Resolving]
  - Pruritus [Recovering/Resolving]

NARRATIVE: CASE EVENT DATE: 20241022
